FAERS Safety Report 5352571-9 (Version None)
Quarter: 2007Q2

REPORT INFORMATION
  Report Type: 
  Country: None (occurrence: None)
  Receive Date: 20070518
  Receipt Date: 20060706
  Transmission Date: 20071010
  Serious: Yes (Hospitalization)
  Sender: FDA-Public Use
  Company Number: Q06-029

PATIENT
  Age: 58 Year
  Sex: Male

DRUGS (14)
  1. SAMARIUM-153-EDTMP [Suspect]
     Indication: PROSTATE CANCER
     Dosage: 0.5 MCI/M2 (48.1MCI)
     Dates: start: 20030130
  2. ZOLEDRONIC ACID [Suspect]
     Dosage: 4MG MONTHLY IV
     Route: 042
     Dates: start: 20030131, end: 20030225
  3. OMEPRAZOLE [Concomitant]
  4. VIOXX [Concomitant]
  5. OSCAL [Concomitant]
  6. REGLAN [Concomitant]
  7. MSIR [Concomitant]
  8. CALCITRAL [Concomitant]
  9. FERROUS SULFATE TAB [Concomitant]
  10. ZOFRAN [Concomitant]
  11. DURAGESIC-100 [Concomitant]
  12. SENNA [Concomitant]
  13. . [Concomitant]
  14. EPOGEN [Concomitant]

REACTIONS (1)
  - RECTAL HAEMORRHAGE [None]
